FAERS Safety Report 20006785 (Version 2)
Quarter: 2021Q4

REPORT INFORMATION
  Report Type: Report from Study
  Country: FR (occurrence: FR)
  Receive Date: 20211028
  Receipt Date: 20211102
  Transmission Date: 20220303
  Serious: Yes (Hospitalization, Other)
  Sender: FDA-Public Use
  Company Number: FR-BRISTOL-MYERS SQUIBB COMPANY-BMS-2021-094536

PATIENT
  Age: 73 Year
  Sex: Male
  Weight: 46 kg

DRUGS (9)
  1. APIXABAN [Suspect]
     Active Substance: APIXABAN
     Indication: Embolism venous
     Dosage: 1 DOSAGE FORM (5 MG TWICE A DAY OR 2.5 MG TWICE A DAY ACCORDING TO THE RANDOMIZATION GROUP), BID
     Route: 048
     Dates: start: 20210204
  2. FOLIC ACID [Concomitant]
     Active Substance: FOLIC ACID
     Indication: Product used for unknown indication
     Dosage: 0.4 MILLIGRAM, QD
     Route: 048
     Dates: start: 20200604
  3. CYANOCOBALAMIN [Concomitant]
     Active Substance: CYANOCOBALAMIN
     Indication: Product used for unknown indication
     Dosage: UNK MICROGRAM
     Route: 030
     Dates: start: 20200604
  4. HYDROCHLOROTHIAZIDE [Concomitant]
     Active Substance: HYDROCHLOROTHIAZIDE
     Indication: Hypertension
     Dosage: 12.5 MILLIGRAM, QD
     Route: 048
     Dates: start: 2018
  5. CANDESARTAN [Concomitant]
     Active Substance: CANDESARTAN
     Indication: Hypertension
     Dosage: 8 MILLIGRAM, QD
     Route: 048
     Dates: start: 2018
  6. GLYCOPYRRONIUM [Concomitant]
     Active Substance: GLYCOPYRRONIUM
     Indication: Chronic respiratory disease
     Dosage: 43 MICROGRAM, QD
     Dates: start: 2018
  7. INDACATEROL [Concomitant]
     Active Substance: INDACATEROL
     Indication: Chronic respiratory disease
     Dosage: 85 MILLIGRAM, QD
     Dates: start: 2018
  8. ALBUTEROL [Concomitant]
     Active Substance: ALBUTEROL
     Indication: Chronic respiratory disease
     Dosage: 100 MICROGRAM, QD
     Dates: start: 20181004
  9. PREDNISONE [Concomitant]
     Active Substance: PREDNISONE
     Indication: Neoplasm malignant
     Dosage: UNK MILLIGRAM
     Route: 048
     Dates: start: 20200703

REACTIONS (3)
  - Respiratory failure [Recovered/Resolved]
  - Hypoventilation [Unknown]
  - Hypoxia [Unknown]

NARRATIVE: CASE EVENT DATE: 20210902
